FAERS Safety Report 8241316-0 (Version None)
Quarter: 2012Q1

REPORT INFORMATION
  Report Type: 
  Country: None (occurrence: None)
  Receive Date: 20120328
  Receipt Date: 20120322
  Transmission Date: 20120608
  Serious: Yes (Life-Threatening, Hospitalization)
  Sender: FDA-Public Use
  Company Number: DE-PFIZER INC-2012074241

PATIENT
  Age: 44 Year
  Sex: Female
  Weight: 65 kg

DRUGS (5)
  1. LYRICA [Suspect]
     Indication: PAIN MANAGEMENT
     Dosage: 100 MG, 1X/DAY
     Route: 048
     Dates: start: 20110601, end: 20110901
  2. OXAGESIC [Concomitant]
     Indication: PAIN MANAGEMENT
     Dosage: 100 MG, UNK
     Dates: start: 20110601, end: 20110901
  3. PANTOPRAZOLE [Concomitant]
     Indication: PAIN MANAGEMENT
     Dosage: 20 MG, UNK
     Route: 048
     Dates: start: 20110601
  4. FLUPIRTINE MALEATE [Concomitant]
     Dosage: 100 MG, 2X/DAY
     Route: 048
     Dates: start: 20110701
  5. CITALOPRAM [Concomitant]
     Indication: DEPRESSED MOOD
     Dosage: 10 MG, UNK
     Route: 048

REACTIONS (3)
  - ASTHENIA [None]
  - DEPRESSION [None]
  - LIVER DISORDER [None]
